FAERS Safety Report 4389493-6 (Version None)
Quarter: 2004Q3

REPORT INFORMATION
  Report Type: 
  Country: None (occurrence: None)
  Receive Date: 20040702
  Receipt Date: 20040310
  Transmission Date: 20050211
  Serious: Yes (Other)
  Sender: FDA-Public Use
  Company Number: CA-GLAXOSMITHKLINE-A0502401A

PATIENT
  Age: 55 Year
  Sex: Female
  Weight: 72.7 kg

DRUGS (4)
  1. PAXIL [Suspect]
     Indication: DEPRESSION
     Dosage: 40MG PER DAY
     Route: 048
     Dates: start: 19991001
  2. WELLBUTRIN [Concomitant]
     Indication: DRUG USE FOR UNKNOWN INDICATION
     Route: 048
     Dates: start: 20030201, end: 20040107
  3. LECTOPAM TAB [Concomitant]
     Indication: DRUG USE FOR UNKNOWN INDICATION
  4. STARNOC [Concomitant]
     Indication: DRUG USE FOR UNKNOWN INDICATION

REACTIONS (6)
  - BLINDNESS [None]
  - DIPLOPIA [None]
  - LENS DISORDER [None]
  - LENTICULAR OPACITIES [None]
  - MYOPIA [None]
  - VISION BLURRED [None]
